FAERS Safety Report 4795361-8 (Version None)
Quarter: 2005Q4

REPORT INFORMATION
  Report Type: 
  Country: None (occurrence: None)
  Receive Date: 20051006
  Receipt Date: 20050923
  Transmission Date: 20060501
  Serious: Yes (Hospitalization)
  Sender: FDA-Public Use
  Company Number: HQWYE068101JUN05

PATIENT
  Age: 59 Year
  Sex: Male

DRUGS (4)
  1. RAPAMUNE [Suspect]
     Indication: PROPHYLAXIS AGAINST TRANSPLANT REJECTION
     Dosage: ^2 MG/3 MG ALTERNATING^ ORAL
     Route: 048
     Dates: start: 20040901, end: 20050531
  2. HEPATECT         (IMMUNOGLOBULIN ANTIHEPATITIS B) [Concomitant]
  3. ALLOPURINOL [Concomitant]
  4. FLUVASTATIN          (FLUVASTATIN) [Concomitant]

REACTIONS (3)
  - BLOOD TRIGLYCERIDES INCREASED [None]
  - DIABETES MELLITUS [None]
  - METABOLIC DISORDER [None]
